FAERS Safety Report 25504767 (Version 2)
Quarter: 2025Q3

REPORT INFORMATION
  Report Type: Report from Study
  Country: CA (occurrence: CA)
  Receive Date: 20250702
  Receipt Date: 20250825
  Transmission Date: 20251021
  Serious: Yes (Other)
  Sender: NOVARTIS
  Company Number: CA-002147023-NVSC2025CA098536

PATIENT
  Age: 33 Year
  Sex: Female

DRUGS (4)
  1. COSENTYX [Suspect]
     Active Substance: SECUKINUMAB
     Indication: Hidradenitis
     Dosage: 300 MG, QMO (THEN TO INCREASE TO 300MG Q 2 WEEKS)
     Route: 058
     Dates: start: 20250310
  2. COSENTYX [Suspect]
     Active Substance: SECUKINUMAB
     Route: 065
     Dates: start: 20250410
  3. SULFATRIM [Concomitant]
     Active Substance: SULFAMETHOXAZOLE\TRIMETHOPRIM
     Indication: Product used for unknown indication
     Dosage: UNK, QD
     Route: 065
  4. Doxytab [Concomitant]
     Indication: Product used for unknown indication
     Dosage: UNK, QD
     Route: 065

REACTIONS (7)
  - Infection [Unknown]
  - Discharge [Recovering/Resolving]
  - Diarrhoea [Unknown]
  - Wound [Not Recovered/Not Resolved]
  - Wound complication [Unknown]
  - Wound secretion [Unknown]
  - Drug ineffective [Unknown]
